FAERS Safety Report 18556885 (Version 1)
Quarter: 2020Q4

REPORT INFORMATION
  Report Type: Spontaneous
  Country: US (occurrence: US)
  Receive Date: 20201129
  Receipt Date: 20201129
  Transmission Date: 20210114
  Serious: No
  Sender: FDA-Public Use
  Company Number: US-JNJFOC-20201145287

PATIENT
  Sex: Female
  Weight: 221 kg

DRUGS (1)
  1. REMICADE [Suspect]
     Active Substance: INFLIXIMAB
     Indication: PRODUCT USED FOR UNKNOWN INDICATION
     Dosage: 2700 MG
     Route: 042

REACTIONS (4)
  - Paraesthesia [Unknown]
  - Incorrect dose administered [Unknown]
  - Off label use [Unknown]
  - Urticaria [Unknown]
